FAERS Safety Report 5683105-7 (Version None)
Quarter: 2008Q1

REPORT INFORMATION
  Report Type: 
  Country: None (occurrence: None)
  Receive Date: 20080327
  Receipt Date: 20080321
  Transmission Date: 20080703
  Serious: Yes (Death, Other)
  Sender: FDA-Public Use
  Company Number: HQWYE301122MAY07

PATIENT
  Sex: Male
  Weight: 53 kg

DRUGS (6)
  1. MYLOTARG [Suspect]
     Indication: ACUTE MYELOID LEUKAEMIA
     Route: 041
     Dates: start: 20070215, end: 20070215
  2. MYLOTARG [Suspect]
     Route: 041
     Dates: start: 20070307, end: 20070307
  3. MAG-LAX [Concomitant]
     Indication: PROPHYLAXIS
     Dosage: 1980 MG/DAY
     Route: 048
     Dates: start: 20061020
  4. TAKEPRON [Concomitant]
     Indication: PROPHYLAXIS
     Dosage: 30 MG/DAY
     Route: 048
     Dates: start: 20061020
  5. CRAVIT [Concomitant]
     Indication: PROPHYLAXIS
     Dosage: 300 MG/DAY
     Route: 048
     Dates: start: 20070215
  6. DIFLUCAN [Concomitant]
     Indication: PROPHYLAXIS
     Dosage: 200 MG/DAY
     Route: 048
     Dates: start: 20070215

REACTIONS (3)
  - FEBRILE NEUTROPENIA [None]
  - NEUTROPHIL COUNT DECREASED [None]
  - PLATELET COUNT DECREASED [None]
